FAERS Safety Report 9529395 (Version 1)
Quarter: 2013Q1

REPORT INFORMATION
  Report Type: Spontaneous
  Country: US (occurrence: None)
  Receive Date: 20130329
  Receipt Date: 20130329
  Transmission Date: 20140127
  Serious: Yes (Other)
  Sender: FDA-Public Use
  Company Number: 1000042730

PATIENT
  Age: 42 Year
  Sex: Female

DRUGS (3)
  1. LINZESS [Suspect]
     Indication: IRRITABLE BOWEL SYNDROME
     Route: 048
     Dates: end: 20130214
  2. LINZESS [Suspect]
     Indication: CONSTIPATION
     Route: 048
     Dates: end: 20130214
  3. HYDROCODONE (HYDROCODONE) (HYDROCODONE) [Concomitant]

REACTIONS (3)
  - Agitation [None]
  - Mood swings [None]
  - Palpitations [None]
